FAERS Safety Report 9291043 (Version 1)
Quarter: 2013Q2

REPORT INFORMATION
  Report Type: Spontaneous
  Country: DK (occurrence: GB)
  Receive Date: 20130515
  Receipt Date: 20130515
  Transmission Date: 20140414
  Serious: Yes (Other)
  Sender: FDA-Public Use
  Company Number: GB-FRI-1000045154

PATIENT
  Age: 36 Year
  Sex: Female
  Weight: 44 kg

DRUGS (7)
  1. CITALOPRAM [Suspect]
     Route: 048
     Dates: start: 20130328
  2. IBUPROFEN [Concomitant]
     Dates: start: 20130328
  3. METHADONE [Concomitant]
     Dates: start: 20130221
  4. METOCLOPRAMIDE [Concomitant]
     Dates: start: 20130222, end: 20130308
  5. PARACETAMOL [Concomitant]
     Dates: start: 20130328, end: 20130412
  6. PROMETHAZINE HYDROCHLORIDE [Concomitant]
     Dates: start: 20130313, end: 20130331
  7. ZOPICLONE [Concomitant]
     Dates: start: 20130429

REACTIONS (1)
  - Drug eruption [Recovering/Resolving]
